FAERS Safety Report 23746130 (Version 1)
Quarter: 2024Q2

REPORT INFORMATION
  Report Type: Spontaneous
  Country: FR (occurrence: FR)
  Receive Date: 20240416
  Receipt Date: 20240416
  Transmission Date: 20240716
  Serious: Yes (Death)
  Sender: FDA-Public Use
  Company Number: None

PATIENT
  Age: 77 Year
  Sex: Female
  Weight: 60 kg

DRUGS (7)
  1. CYCLOPHOSPHAMIDE [Suspect]
     Active Substance: CYCLOPHOSPHAMIDE
     Indication: Adult T-cell lymphoma/leukaemia
     Dosage: THERAPY START DATE: 15-FEB-2024
     Route: 042
     Dates: end: 20240215
  2. CYCLOPHOSPHAMIDE [Suspect]
     Active Substance: CYCLOPHOSPHAMIDE
     Dosage: THERAPY START DATE: 09-FEB-2024
     Route: 042
     Dates: end: 20240209
  3. METHOTREXATE [Suspect]
     Active Substance: METHOTREXATE
     Indication: Adult T-cell lymphoma/leukaemia
     Dosage: THERAPY START DATE: 16-FEB-2024
     Route: 042
     Dates: end: 20240216
  4. METHOTREXATE [Suspect]
     Active Substance: METHOTREXATE
     Dosage: THERAPY START DATE: 15-FEB-2024
     Route: 029
     Dates: end: 20240215
  5. CYTARABINE [Suspect]
     Active Substance: CYTARABINE
     Indication: Adult T-cell lymphoma/leukaemia
     Dosage: THERAPY START DATE: 15-FEB-2024
     Route: 029
     Dates: end: 20240215
  6. VINCRISTINE SULFATE [Suspect]
     Active Substance: VINCRISTINE SULFATE
     Indication: Adult T-cell lymphoma/leukaemia
     Dosage: THERAPY START DATE: 09-FEB-2024
     Route: 042
     Dates: end: 20240209
  7. DOXORUBICIN HYDROCHLORIDE [Suspect]
     Active Substance: DOXORUBICIN HYDROCHLORIDE
     Indication: Adult T-cell lymphoma/leukaemia
     Dosage: THERAPY START DATE: 15-FEB-2024
     Route: 042
     Dates: end: 20240215

REACTIONS (3)
  - Chemotherapeutic drug level increased [Fatal]
  - Pancytopenia [Fatal]
  - Renal failure [Fatal]

NARRATIVE: CASE EVENT DATE: 20240201
